FAERS Safety Report 5273169-7 (Version None)
Quarter: 2007Q1

REPORT INFORMATION
  Report Type: 
  Country: None (occurrence: None)
  Receive Date: 20070322
  Receipt Date: 20070312
  Transmission Date: 20070707
  Serious: Yes (Other)
  Sender: FDA-Public Use
  Company Number: BR-PFIZER INC-2007019717

PATIENT
  Sex: Male

DRUGS (5)
  1. LIPITOR [Suspect]
     Indication: DYSLIPIDAEMIA
     Route: 048
  2. ENALAPRIL MALEATE [Concomitant]
  3. SELOZOK [Concomitant]
     Route: 048
     Dates: start: 20040401
  4. ALL OTHER THERAPEUTIC PRODUCTS [Concomitant]
     Dates: start: 20040401
  5. AAS [Concomitant]
     Route: 048
     Dates: start: 20040401

REACTIONS (1)
  - THROAT CANCER [None]
